FAERS Safety Report 21494414 (Version 1)
Quarter: 2022Q4

REPORT INFORMATION
  Report Type: Spontaneous
  Country: GB (occurrence: GB)
  Receive Date: 20221021
  Receipt Date: 20221021
  Transmission Date: 20230113
  Serious: Yes (Hospitalization)
  Sender: FDA-Public Use
  Company Number: None

PATIENT
  Age: 49 Year
  Sex: Male
  Weight: 114 kg

DRUGS (6)
  1. TRIMETHOPRIM [Suspect]
     Active Substance: TRIMETHOPRIM
     Indication: Prostatitis
     Dosage: 400 MILLIGRAM DAILY; FOR 4 WEEKS
     Route: 065
     Dates: start: 20220824
  2. BETAMETHASONE\FUSIDIC ACID [Concomitant]
     Active Substance: BETAMETHASONE\FUSIDIC ACID
     Indication: Balanoposthitis
     Dosage: APPLY THINLY ONCE OR TWICE A DAY TO AFFECTED AREA, BETAMETHASONE VALERATE 0.1% / FUSIDIC ACID 2%
     Dates: start: 20220824
  3. NITROFURANTOIN [Concomitant]
     Active Substance: NITROFURANTOIN
     Indication: Product used for unknown indication
     Dosage: 2 DOSAGE FORMS DAILY;
     Dates: start: 20220727, end: 20220825
  4. OXYBUTYNIN [Concomitant]
     Active Substance: OXYBUTYNIN
     Indication: Prostatitis
     Dosage: ONE TO BE TAKEN TWO-THREE TIMES A DAY
     Dates: start: 20220830
  5. TAMSULOSIN [Concomitant]
     Active Substance: TAMSULOSIN
     Indication: Prostatitis
     Dosage: 1 DOSAGE FORMS DAILY;
     Dates: start: 20220824
  6. TRIMETHOPRIM [Concomitant]
     Active Substance: TRIMETHOPRIM
     Indication: Prostatitis
     Dosage: 400 MILLIGRAM DAILY; FOR 4 WEEKS

REACTIONS (3)
  - Rash [Recovering/Resolving]
  - Acute kidney injury [Recovered/Resolved]
  - Swelling of eyelid [Recovered/Resolved]

NARRATIVE: CASE EVENT DATE: 20220904
